FAERS Safety Report 22525529 (Version 1)
Quarter: 2023Q2

REPORT INFORMATION
  Report Type: Spontaneous
  Country: US (occurrence: US)
  Receive Date: 20230606
  Receipt Date: 20230606
  Transmission Date: 20230722
  Serious: No
  Sender: FDA-Public Use
  Company Number: US-TEVA-2023-US-2890458

PATIENT
  Age: 54 Year
  Sex: Female
  Weight: 72.5 kg

DRUGS (3)
  1. NUVIGIL [Suspect]
     Active Substance: ARMODAFINIL
     Indication: Fatigue
     Dosage: 250 MILLIGRAM DAILY; MORNING
     Route: 065
     Dates: start: 2003
  2. NUVIGIL [Suspect]
     Active Substance: ARMODAFINIL
     Dosage: 250 MILLIGRAM DAILY; 250 MG
     Route: 065
  3. PROVIGIL [Suspect]
     Active Substance: MODAFINIL
     Indication: Product used for unknown indication
     Dosage: 200 MG
     Route: 065

REACTIONS (5)
  - Drug intolerance [Unknown]
  - Fatigue [Unknown]
  - Somnolence [Unknown]
  - Body height decreased [Unknown]
  - Product use in unapproved indication [Unknown]
